FAERS Safety Report 24537791 (Version 2)
Quarter: 2025Q2

REPORT INFORMATION
  Report Type: Spontaneous
  Country: JP (occurrence: JP)
  Receive Date: 20241023
  Receipt Date: 20250508
  Transmission Date: 20250717
  Serious: Yes (Other)
  Sender: TAKEDA
  Company Number: JP-TAKEDA-2024TJP015164

PATIENT

DRUGS (3)
  1. ALUNBRIG [Suspect]
     Active Substance: BRIGATINIB
     Indication: Product used for unknown indication
  2. ALUNBRIG [Suspect]
     Active Substance: BRIGATINIB
  3. ASPIRIN [Suspect]
     Active Substance: ASPIRIN
     Indication: Product used for unknown indication

REACTIONS (1)
  - Gastrointestinal haemorrhage [Recovered/Resolved]

NARRATIVE: CASE EVENT DATE: 20241001
